FAERS Safety Report 10681112 (Version 1)
Quarter: 2014Q4

REPORT INFORMATION
  Report Type: Spontaneous
  Country: JP (occurrence: JP)
  Receive Date: 20141229
  Receipt Date: 20141229
  Transmission Date: 20150529
  Serious: Yes (Hospitalization)
  Sender: FDA-Public Use
  Company Number: PHHY2014JP168699

PATIENT
  Age: 42 Year
  Sex: Male

DRUGS (6)
  1. CLOCAPRAMINE [Suspect]
     Active Substance: CLOCAPRAMINE
     Indication: SCHIZOPHRENIA
     Dosage: 75 MG, UNK
     Route: 065
  2. CHLORPROMAZINE [Concomitant]
     Active Substance: CHLORPROMAZINE
     Indication: PRODUCT USED FOR UNKNOWN INDICATION
     Dosage: 787.5 MG, UNK
     Route: 065
  3. HALOPERIDOL. [Suspect]
     Active Substance: HALOPERIDOL
     Indication: SCHIZOPHRENIA
     Dosage: 12 MG, UNK
     Route: 065
  4. CHLORPROMAZINE [Concomitant]
     Active Substance: CHLORPROMAZINE
     Dosage: 325 MG, UNK
     Route: 065
  5. CHLORPROMAZINE [Concomitant]
     Active Substance: CHLORPROMAZINE
     Dosage: 1475 MG, UNK
     Route: 065
  6. CHLORPROMAZINE [Concomitant]
     Active Substance: CHLORPROMAZINE
     Dosage: 10 MG, UNK
     Route: 065

REACTIONS (2)
  - Rebound psychosis [Recovering/Resolving]
  - Persecutory delusion [Recovering/Resolving]
